FAERS Safety Report 4326163-4 (Version None)
Quarter: 2004Q1

REPORT INFORMATION
  Report Type: 
  Country: None (occurrence: None)
  Receive Date: 20040324
  Receipt Date: 20020807
  Transmission Date: 20041129
  Serious: Yes (Other)
  Sender: FDA-Public Use
  Company Number: 2002IC000257

PATIENT
  Age: 73 Year
  Sex: Male
  Weight: 75 kg

DRUGS (2)
  1. FLUOROURACIL [Suspect]
     Dosage: 790.5 MG; D1-5; INTRAVENOUS
     Route: 042
     Dates: start: 19990907, end: 19991009
  2. LEUCOVORIN (FOLINIC ACID) [Suspect]
     Dosage: 37.2 MG; D1-5; INTRAVENOUS
     Route: 042
     Dates: start: 19990907, end: 19991009

REACTIONS (1)
  - STOMATITIS [None]
